FAERS Safety Report 12504580 (Version 1)
Quarter: 2016Q2

REPORT INFORMATION
  Report Type: Spontaneous
  Country: US (occurrence: US)
  Receive Date: 20160628
  Receipt Date: 20160628
  Transmission Date: 20160815
  Serious: No
  Sender: FDA-Public Use
  Company Number: PHHY2016US088148

PATIENT
  Age: 37 Year
  Sex: Female

DRUGS (1)
  1. CAMBIA [Suspect]
     Active Substance: DICLOFENAC POTASSIUM
     Indication: HEADACHE
     Dosage: 50 MG, (1 PACKET IN 20 ML OF WATER TAKE AT ONSET OF HEADACHE MAY REPEAT IN 4 HOUR,ORAL)
     Route: 048
     Dates: start: 20160504, end: 20160606

REACTIONS (1)
  - Drug ineffective [Unknown]

NARRATIVE: CASE EVENT DATE: 20160606
